FAERS Safety Report 6941329-2 (Version None)
Quarter: 2010Q3

REPORT INFORMATION
  Report Type: 
  Country: None (occurrence: None)
  Receive Date: 20100824
  Receipt Date: 20100824
  Transmission Date: 20110219
  Serious: Yes (Hospitalization, Disabling)
  Sender: FDA-Public Use
  Company Number: None

PATIENT
  Age: 40 Year
  Sex: Male
  Weight: 63.5036 kg

DRUGS (3)
  1. DIDANOSINE 250 EC [Suspect]
     Indication: HIV INFECTION
     Dosage: 250 QDAY. PO
     Route: 048
     Dates: end: 20030101
  2. TENOFOVIR [Concomitant]
  3. SAQUINAVIR [Concomitant]

REACTIONS (7)
  - FATIGUE [None]
  - GASTRIC VARICES [None]
  - IRON DEFICIENCY ANAEMIA [None]
  - LIVER INJURY [None]
  - PANCYTOPENIA [None]
  - PORTAL HYPERTENSION [None]
  - WEIGHT DECREASED [None]
